FAERS Safety Report 4530555-8 (Version None)
Quarter: 2004Q4

REPORT INFORMATION
  Report Type: 
  Country: None (occurrence: None)
  Receive Date: 20041216
  Receipt Date: 20041125
  Transmission Date: 20050328
  Serious: Yes (Death, Hospitalization)
  Sender: FDA-Public Use
  Company Number: JP_0410205300

PATIENT
  Age: 3 Year
  Sex: Male

DRUGS (3)
  1. ONCOVIN [Suspect]
     Indication: ACUTE LYMPHOCYTIC LEUKAEMIA
     Dates: start: 19990122
  2. DEXAMETHASONE [Concomitant]
  3. PREDNISOLONE [Concomitant]

REACTIONS (20)
  - ABDOMINAL PAIN [None]
  - ASPARTATE AMINOTRANSFERASE INCREASED [None]
  - BACILLUS INFECTION [None]
  - BLOOD LACTATE DEHYDROGENASE INCREASED [None]
  - BLOOD PRESSURE AMBULATORY DECREASED [None]
  - C-REACTIVE PROTEIN DECREASED [None]
  - COMA [None]
  - CUTIS LAXA [None]
  - DYSPNOEA [None]
  - GRANULOCYTE COUNT DECREASED [None]
  - HAEMOGLOBIN DECREASED [None]
  - HEART RATE DECREASED [None]
  - LABORATORY TEST ABNORMAL [None]
  - LYMPHOCYTE PERCENTAGE INCREASED [None]
  - MONOCYTE PERCENTAGE DECREASED [None]
  - OXYGEN SATURATION DECREASED [None]
  - PLATELET COUNT DECREASED [None]
  - SEPSIS [None]
  - TONIC CONVULSION [None]
  - WHITE BLOOD CELL COUNT DECREASED [None]
